FAERS Safety Report 21376782 (Version 1)
Quarter: 2022Q3

REPORT INFORMATION
  Report Type: Spontaneous
  Country: DE (occurrence: DE)
  Receive Date: 20220926
  Receipt Date: 20220926
  Transmission Date: 20221026
  Serious: Yes (Life-Threatening, Hospitalization)
  Sender: FDA-Public Use
  Company Number: DE-OTSUKA-2022_046053

PATIENT
  Age: 76 Year
  Sex: Female
  Weight: 56 kg

DRUGS (1)
  1. DECITABINE [Suspect]
     Active Substance: DECITABINE
     Indication: Product used for unknown indication
     Dosage: D1 BIS D5
     Route: 065

REACTIONS (5)
  - General physical health deterioration [Unknown]
  - Cough [Unknown]
  - Asthenia [Unknown]
  - Dyspnoea [Unknown]
  - Pyrexia [Unknown]
